FAERS Safety Report 9679035 (Version 2)
Quarter: 2013Q4

REPORT INFORMATION
  Report Type: Spontaneous
  Country: US (occurrence: US)
  Receive Date: 20131108
  Receipt Date: 20131120
  Transmission Date: 20140711
  Serious: Yes (Other)
  Sender: FDA-Public Use
  Company Number: US-PFIZER INC-2013318557

PATIENT
  Sex: Female

DRUGS (1)
  1. LYRICA [Suspect]
     Dosage: UNK
     Dates: start: 2012

REACTIONS (8)
  - Cerebrovascular accident [Unknown]
  - Eye disorder [Unknown]
  - Hypertension [Unknown]
  - Pain [Unknown]
  - Musculoskeletal disorder [Unknown]
  - Limb discomfort [Unknown]
  - Paraesthesia [Unknown]
  - Hypoaesthesia [Not Recovered/Not Resolved]
